FAERS Safety Report 7246502-4 (Version None)
Quarter: 2011Q1

REPORT INFORMATION
  Report Type: 
  Country: None (occurrence: None)
  Receive Date: 20110126
  Receipt Date: 20110121
  Transmission Date: 20110831
  Serious: Yes (Death, Hospitalization)
  Sender: FDA-Public Use
  Company Number: TN-SANOFI-AVENTIS-2011SA004587

PATIENT
  Age: 75 Year
  Sex: Male

DRUGS (7)
  1. PLAVIX [Suspect]
     Indication: ISCHAEMIC STROKE
     Route: 048
     Dates: start: 20101010, end: 20101203
  2. ASPEGIC 325 [Concomitant]
     Route: 048
     Dates: end: 20101119
  3. CORDARONE [Concomitant]
     Route: 048
     Dates: end: 20101203
  4. TANAKAN [Concomitant]
     Route: 048
     Dates: end: 20101203
  5. SPIRIVA [Concomitant]
     Route: 055
     Dates: end: 20101203
  6. BUDESONIDE [Concomitant]
     Dates: end: 20101203
  7. ALDALIX [Concomitant]
     Route: 048
     Dates: end: 20101203

REACTIONS (1)
  - LUNG INFECTION [None]
